FAERS Safety Report 23631712 (Version 1)
Quarter: 2024Q1

REPORT INFORMATION
  Report Type: Spontaneous
  Country: US (occurrence: None)
  Receive Date: 20240313
  Receipt Date: 20240313
  Transmission Date: 20240410
  Serious: Yes (Hospitalization, Disabling, Other)
  Sender: FDA-Public Use
  Company Number: None

PATIENT
  Age: 41 Year
  Sex: Female
  Weight: 63.45 kg

DRUGS (8)
  1. CONTRAVE [Suspect]
     Active Substance: BUPROPION HYDROCHLORIDE\NALTREXONE HYDROCHLORIDE
     Indication: Weight decreased
     Dosage: OTHER QUANTITY : 1 TABLET(S);?FREQUENCY : TWICE A DAY;?
     Route: 048
     Dates: start: 20231211, end: 20240311
  2. metopholol tararate [Concomitant]
  3. pantophrazole [Concomitant]
  4. MECLIZINE [Concomitant]
     Active Substance: MECLIZINE HYDROCHLORIDE
  5. CYCLOBENZAPRINE [Concomitant]
     Active Substance: CYCLOBENZAPRINE
  6. GABAPENTIN [Concomitant]
     Active Substance: GABAPENTIN
  7. PREDNISONE [Concomitant]
     Active Substance: PREDNISONE
  8. multi vitaming gummies [Concomitant]

REACTIONS (11)
  - Dizziness [None]
  - Disorientation [None]
  - Presyncope [None]
  - Feeling cold [None]
  - Palpitations [None]
  - Sinus tachycardia [None]
  - Impaired driving ability [None]
  - Therapy cessation [None]
  - Anxiety [None]
  - Blood pressure increased [None]
  - Visual impairment [None]

NARRATIVE: CASE EVENT DATE: 20240304
